FAERS Safety Report 6980352-9 (Version None)
Quarter: 2010Q3

REPORT INFORMATION
  Report Type: 
  Country: None (occurrence: None)
  Receive Date: 20100914
  Receipt Date: 20100907
  Transmission Date: 20110219
  Serious: Yes (Other)
  Sender: FDA-Public Use
  Company Number: IT-BAYER-201037457GPV

PATIENT
  Age: 76 Year
  Sex: Female
  Weight: 62 kg

DRUGS (3)
  1. NEXAVAR [Suspect]
     Indication: HEPATIC NEOPLASM MALIGNANT
     Dosage: TOTAL DAILY DOSE: 800 MG  UNIT DOSE: 200 MG
     Route: 048
     Dates: start: 20091114, end: 20100712
  2. LANSOX [Concomitant]
     Indication: VARICES OESOPHAGEAL
     Dates: start: 20090101, end: 20100801
  3. INDERAL [Concomitant]
     Indication: PORTAL HYPERTENSION
     Route: 048
     Dates: start: 20090101, end: 20100801

REACTIONS (2)
  - ASCITES [None]
  - HEPATIC FAILURE [None]
